FAERS Safety Report 8651921 (Version 2)
Quarter: 2012Q4

REPORT INFORMATION
  Report Type: 
  Country: US (occurrence: US)
  Receive Date: 20120706
  Receipt Date: 20121220
  Transmission Date: 20130627
  Serious: Yes (Congenital Anomaly, Other)
  Sender: FDA-Public Use
  Company Number: US-PFIZER INC-2012159478

PATIENT
  Sex: Male

DRUGS (8)
  1. ZOLOFT [Suspect]
     Indication: ANXIETY
     Dosage: UNK
     Route: 064
     Dates: start: 2003
  2. ZOLOFT [Suspect]
     Indication: DEPRESSION
     Dosage: UNK
     Route: 064
     Dates: start: 2006, end: 2010
  3. SERTRALINE HCL [Suspect]
     Indication: ANXIETY
     Dosage: UNK
     Route: 064
  4. SERTRALINE HCL [Suspect]
     Indication: DEPRESSION
  5. IRON [Concomitant]
     Dosage: UNK
     Route: 064
  6. VITAMIN B12 [Concomitant]
     Dosage: UNK
     Route: 064
  7. COD-LIVER OIL [Concomitant]
     Dosage: UNK
     Route: 064
  8. YAZ [Concomitant]
     Indication: BIRTH CONTROL
     Dosage: UNK
     Route: 064

REACTIONS (3)
  - Maternal exposure timing unspecified [Unknown]
  - Congenital musculoskeletal anomaly [Unknown]
  - Craniosynostosis [Unknown]
